FAERS Safety Report 5708132-2 (Version None)
Quarter: 2008Q2

REPORT INFORMATION
  Report Type: 
  Country: None (occurrence: None)
  Receive Date: 20080417
  Receipt Date: 20080411
  Transmission Date: 20081010
  Serious: Yes (Other)
  Sender: FDA-Public Use
  Company Number: A0722360A

PATIENT
  Age: 37 Year
  Sex: Female

DRUGS (4)
  1. FLONASE [Suspect]
     Dosage: 1SPR PER DAY
     Route: 045
  2. IMITREX [Suspect]
     Indication: MIGRAINE
     Dosage: 1TAB AS REQUIRED
     Route: 048
  3. BIRTH CONTROL PILL [Concomitant]
  4. ZYRTEC [Concomitant]

REACTIONS (3)
  - FATIGUE [None]
  - MALAISE [None]
  - NEUTROPENIA [None]
